FAERS Safety Report 16353583 (Version 6)
Quarter: 2020Q1

REPORT INFORMATION
  Report Type: Spontaneous
  Country: US (occurrence: US)
  Receive Date: 20190524
  Receipt Date: 20200108
  Transmission Date: 20200409
  Serious: Yes (Hospitalization, Other)
  Sender: FDA-Public Use
  Company Number: US-CATALYST PHARMACEUTICALS, INC-2019CAT00147

PATIENT
  Sex: Male
  Weight: 82.09 kg

DRUGS (4)
  1. COSOPT [Concomitant]
     Active Substance: DORZOLAMIDE HYDROCHLORIDE\TIMOLOL MALEATE
  2. FIRDAPSE [Suspect]
     Active Substance: AMIFAMPRIDINE
     Dosage: 15 MG, 5X/DAY
     Route: 048
  3. MESTINON (PYRIDOSTIGMINE BROMIDE ^225^) [Concomitant]
     Dosage: UNK, 5X/DAY
  4. FIRDAPSE [Suspect]
     Active Substance: AMIFAMPRIDINE
     Indication: MYASTHENIC SYNDROME
     Dosage: 15 MG, 5X/DAY
     Route: 048

REACTIONS (35)
  - Pain [Not Recovered/Not Resolved]
  - Dysstasia [Not Recovered/Not Resolved]
  - Inappropriate schedule of product administration [Recovered/Resolved]
  - Gait disturbance [Not Recovered/Not Resolved]
  - Weight decreased [Not Recovered/Not Resolved]
  - Diarrhoea [Recovering/Resolving]
  - Paraesthesia oral [Recovering/Resolving]
  - Aphasia [Recovered/Resolved]
  - Swollen tongue [Recovering/Resolving]
  - Heart rate irregular [Unknown]
  - Gait inability [Recovered/Resolved]
  - Muscle rigidity [Recovered/Resolved]
  - Musculoskeletal stiffness [Not Recovered/Not Resolved]
  - Muscle spasms [Unknown]
  - Seizure [Not Recovered/Not Resolved]
  - Hypertension [Not Recovered/Not Resolved]
  - Emotional disorder [Not Recovered/Not Resolved]
  - Back pain [Unknown]
  - Unevaluable event [Unknown]
  - Dehydration [Unknown]
  - Balance disorder [Not Recovered/Not Resolved]
  - Pharyngeal swelling [Recovering/Resolving]
  - Dyspnoea [Not Recovered/Not Resolved]
  - Hepatic enzyme increased [Unknown]
  - Myasthenic syndrome [Unknown]
  - Therapeutic product effect incomplete [Not Recovered/Not Resolved]
  - Muscle atrophy [Unknown]
  - Dizziness [Unknown]
  - Muscular weakness [Not Recovered/Not Resolved]
  - Nausea [Not Recovered/Not Resolved]
  - Heart rate increased [Unknown]
  - Dysarthria [Recovered/Resolved]
  - Anger [Not Recovered/Not Resolved]
  - Asthenia [Unknown]
  - Headache [Not Recovered/Not Resolved]
